FAERS Safety Report 4925382-3 (Version None)
Quarter: 2006Q1

REPORT INFORMATION
  Report Type: 
  Country: None (occurrence: None)
  Receive Date: 20060228
  Receipt Date: 20050210
  Transmission Date: 20060701
  Serious: No
  Sender: FDA-Public Use
  Company Number: US-GLAXOSMITHKLINE-A0544951A

PATIENT
  Age: 16 Year
  Sex: Female
  Weight: 63.6 kg

DRUGS (5)
  1. LAMICTAL [Suspect]
     Dosage: 50MG PER DAY
     Route: 048
     Dates: start: 20050113, end: 20050205
  2. ZOLOFT [Concomitant]
     Dosage: 25MG PER DAY
     Route: 048
     Dates: start: 20050113
  3. KEFLEX [Concomitant]
  4. ALBUTEROL [Concomitant]
     Indication: SEASONAL ALLERGY
  5. FLONASE [Concomitant]
     Indication: SEASONAL ALLERGY
     Route: 045

REACTIONS (3)
  - LYMPHADENOPATHY [None]
  - RASH [None]
  - RESPIRATORY TRACT INFECTION [None]
